FAERS Safety Report 10159567 (Version 4)
Quarter: 2014Q2

REPORT INFORMATION
  Report Type: Spontaneous
  Country: US (occurrence: US)
  Receive Date: 20140508
  Receipt Date: 20140530
  Transmission Date: 20141212
  Serious: Yes (Other)
  Sender: FDA-Public Use
  Company Number: US-JNJFOC-20140501840

PATIENT
  Age: 83 Year
  Sex: Male
  Weight: 77.11 kg

DRUGS (18)
  1. XARELTO [Suspect]
     Indication: CEREBROVASCULAR ACCIDENT PROPHYLAXIS
     Route: 048
     Dates: start: 20140211, end: 20140421
  2. XARELTO [Suspect]
     Indication: ATRIAL FIBRILLATION
     Route: 048
     Dates: start: 20140211, end: 20140421
  3. ASA [Suspect]
     Indication: ANTIPLATELET THERAPY
     Route: 048
     Dates: start: 20120831
  4. OMEGA 3 [Concomitant]
     Dosage: 300-90-24-50
     Route: 048
  5. ATORVASTATIN [Concomitant]
     Route: 048
     Dates: start: 20131001
  6. VIT-D3 [Concomitant]
     Dosage: 5000 U
     Route: 048
  7. CIPROFLOXACIN [Concomitant]
     Route: 048
     Dates: start: 20140415
  8. COQ10 [Concomitant]
     Route: 048
  9. VITAMIN B12 [Concomitant]
     Route: 065
  10. DIGOXIN [Concomitant]
     Route: 065
     Dates: start: 20140419
  11. FUROSEMIDE [Concomitant]
     Route: 048
     Dates: start: 20140401
  12. MAGNESIUM [Concomitant]
     Route: 048
  13. METRONIDAZOLE [Concomitant]
     Route: 048
     Dates: start: 20140415
  14. K-DUR [Concomitant]
     Route: 048
     Dates: start: 20140214
  15. MIRAPEX [Concomitant]
     Route: 065
     Dates: start: 20120831
  16. RISPERDAL [Concomitant]
     Route: 048
     Dates: start: 20120831
  17. EXELON [Concomitant]
     Route: 061
     Dates: start: 20120831
  18. FLORASTOR [Concomitant]
     Route: 065
     Dates: start: 20120415

REACTIONS (3)
  - Haemoglobin decreased [Recovered/Resolved]
  - Gastritis haemorrhagic [Recovered/Resolved]
  - Haematocrit decreased [Recovered/Resolved]
